FAERS Safety Report 13059324 (Version 4)
Quarter: 2017Q1

REPORT INFORMATION
  Report Type: Report from Study
  Country: CO (occurrence: CO)
  Receive Date: 20161223
  Receipt Date: 20170224
  Transmission Date: 20170428
  Serious: Yes (Hospitalization, Other)
  Sender: FDA-Public Use
  Company Number: PHHY2016CO176891

PATIENT
  Age: 61 Year
  Sex: Female
  Weight: 64 kg

DRUGS (6)
  1. SERTAL COMPUESTO [Concomitant]
     Indication: ABDOMINAL PAIN UPPER
     Dosage: UNK
     Route: 065
  2. AFINITOR [Suspect]
     Active Substance: EVEROLIMUS
     Dosage: 10 MG, QOD (EVERY 48 HOURS)
     Route: 048
     Dates: start: 20161228
  3. EXEMESTANE. [Concomitant]
     Active Substance: EXEMESTANE
     Indication: PRODUCT USED FOR UNKNOWN INDICATION
     Dosage: 25 MG, QD
     Route: 065
  4. CALCIUM [Concomitant]
     Active Substance: CALCIUM
     Indication: PRODUCT USED FOR UNKNOWN INDICATION
     Route: 065
  5. ACETAMINOPHEN. [Concomitant]
     Active Substance: ACETAMINOPHEN
     Indication: PRODUCT USED FOR UNKNOWN INDICATION
     Dosage: UNK UNK, QD
     Route: 065
  6. AFINITOR [Suspect]
     Active Substance: EVEROLIMUS
     Indication: BREAST CANCER
     Dosage: 10 MG, QD (ONCE DAILY)
     Route: 048
     Dates: start: 20161205

REACTIONS (14)
  - Urinary tract infection [Unknown]
  - Dysuria [Not Recovered/Not Resolved]
  - Anaemia [Unknown]
  - Abdominal pain upper [Unknown]
  - Proteus test positive [Unknown]
  - Pyrexia [Unknown]
  - Lung disorder [Unknown]
  - Cardiac disorder [Unknown]
  - Stomatitis [Recovering/Resolving]
  - Pharyngitis [Unknown]
  - Cardiac neoplasm unspecified [Unknown]
  - Metastasis [Unknown]
  - Vomiting [Unknown]
  - Eating disorder [Unknown]

NARRATIVE: CASE EVENT DATE: 20161216
